FAERS Safety Report 6402368-3 (Version None)
Quarter: 2009Q4

REPORT INFORMATION
  Report Type: 
  Country: None (occurrence: None)
  Receive Date: 20091015
  Receipt Date: 20091002
  Transmission Date: 20100525
  Serious: Yes (Other)
  Sender: FDA-Public Use
  Company Number: JP-ROCHE-662312

PATIENT
  Age: 22 Year
  Sex: Female

DRUGS (2)
  1. ROCEPHIN [Suspect]
     Indication: DRUG USE FOR UNKNOWN INDICATION
     Dosage: DRUG: ROCEPHIN 1G BAG
     Route: 041
     Dates: start: 20081201, end: 20081201
  2. ROCEPHIN [Suspect]
     Dosage: DRUG: ROCEPHIN 1G BAG
     Route: 041

REACTIONS (1)
  - OCULOMUCOCUTANEOUS SYNDROME [None]
